FAERS Safety Report 11074849 (Version 1)
Quarter: 2015Q2

REPORT INFORMATION
  Report Type: Spontaneous
  Country: PL (occurrence: PL)
  Receive Date: 20150429
  Receipt Date: 20150429
  Transmission Date: 20150821
  Serious: Yes (Other)
  Sender: FDA-Public Use
  Company Number: PL-TEVA-556585ISR

PATIENT
  Age: 58 Year
  Sex: Male
  Weight: 87.5 kg

DRUGS (2)
  1. EQUORAL [Suspect]
     Active Substance: CYCLOSPORINE
     Indication: PSORIASIS
     Dosage: 250 MILLIGRAM DAILY;
     Route: 048
     Dates: start: 20141224, end: 20150120
  2. EQUORAL [Suspect]
     Active Substance: CYCLOSPORINE
     Indication: PSORIATIC ARTHROPATHY

REACTIONS (7)
  - Tremor [Unknown]
  - Headache [Unknown]
  - Pain in extremity [Unknown]
  - Palpitations [Unknown]
  - Oedema peripheral [Unknown]
  - Erythema [Unknown]
  - Malaise [Unknown]

NARRATIVE: CASE EVENT DATE: 201412
